FAERS Safety Report 15647385 (Version 1)
Quarter: 2018Q4

REPORT INFORMATION
  Report Type: Report from Study
  Country: ES (occurrence: ES)
  Receive Date: 20181122
  Receipt Date: 20181122
  Transmission Date: 20190205
  Serious: Yes (Life-Threatening, Hospitalization)
  Sender: FDA-Public Use
  Company Number: ES-ACCORD-092908

PATIENT
  Age: 37 Year
  Sex: Female

DRUGS (5)
  1. DOXORUBICIN [Suspect]
     Active Substance: DOXORUBICIN
     Indication: NON-HODGKIN^S LYMPHOMA
     Dosage: IRREGULAR DOSE IN DAILY DOSE. CYCLIC ADMINISTRATION, ON DAY 1 OF THE CYCLE UNTIL COMPLETING 6 CYCLES
     Route: 042
     Dates: start: 20150317, end: 201506
  2. PREDNISONE. [Suspect]
     Active Substance: PREDNISONE
     Indication: PRODUCT USED FOR UNKNOWN INDICATION
     Dosage: IRREGULAR DOSE IN DAILY DOSE. CYCLIC ADMINISTRATION, ON DAY 1 OF THE CYCLE UNTIL COMPLETING 6 CYCLES
     Route: 042
     Dates: start: 20150317, end: 201506
  3. CYCLOPHOSPHAMIDE/CYCLOPHOSPHAMIDE MONOHYDRATE [Suspect]
     Active Substance: CYCLOPHOSPHAMIDE
     Indication: NON-HODGKIN^S LYMPHOMA
     Dosage: IRREGULAR DOSE IN DAILY DOSE. CYCLIC ADMINISTRATION, ON DAY 1 OF THE CYCLE UNTIL COMPLETING 6 CYCLES
     Route: 042
     Dates: start: 20150317, end: 201506
  4. VINCRISTINE [Suspect]
     Active Substance: VINCRISTINE
     Indication: NON-HODGKIN^S LYMPHOMA
     Dosage: DOSAGE OF 2 MG DAILY. CYCLIC ADMINISTRATION, ON DAY 1 OF THE CYCLE UNTIL COMPLETING 6 CYCLES
     Dates: start: 20150317, end: 201506
  5. ETOPOSIDE. [Suspect]
     Active Substance: ETOPOSIDE
     Indication: NON-HODGKIN^S LYMPHOMA
     Dosage: CYCLIC ADMINISTRATION, ON DAY 1 TO 3 OF THE?CYCLE UNTIL COMPLETING 6 CYCLES
     Route: 042
     Dates: start: 20150317, end: 201506

REACTIONS (1)
  - Refractory anaemia with an excess of blasts [Recovered/Resolved]

NARRATIVE: CASE EVENT DATE: 20170104
